FAERS Safety Report 4358018-3 (Version None)
Quarter: 2004Q2

REPORT INFORMATION
  Report Type: 
  Country: None (occurrence: None)
  Receive Date: 20040513
  Receipt Date: 20040513
  Transmission Date: 20050107
  Serious: Yes (Other)
  Sender: FDA-Public Use
  Company Number: None

PATIENT
  Age: 53 Year
  Sex: Male
  Weight: 102.1 kg

DRUGS (2)
  1. GAMMAR-P I.V. [Suspect]
     Indication: CHRONIC INFLAMMATORY DEMYELINATING POLYRADICULONEUROPATHY
     Dosage: 45 GM DAILYX2 QO INTRAVENOUS
     Route: 042
     Dates: start: 20040509, end: 20040510
  2. GAMMAR-P I.V. [Suspect]

REACTIONS (1)
  - URTICARIA [None]
